FAERS Safety Report 5629444-7 (Version None)
Quarter: 2008Q1

REPORT INFORMATION
  Report Type: 
  Country: None (occurrence: None)
  Receive Date: 20080218
  Receipt Date: 20080205
  Transmission Date: 20080703
  Serious: Yes (Death, Hospitalization)
  Sender: FDA-Public Use
  Company Number: CA-ELI_LILLY_AND_COMPANY-CA200802000835

PATIENT
  Age: 77 Year
  Sex: Male

DRUGS (12)
  1. FORTEO [Suspect]
     Indication: OSTEOPOROSIS
     Dosage: 20 UG, DAILY (1/D)
     Route: 058
     Dates: start: 20070612, end: 20070816
  2. WARFARIN SODIUM [Concomitant]
     Dosage: 4 MG, DAILY (1/D)
     Dates: start: 19740101
  3. WARFARIN SODIUM [Concomitant]
     Dosage: 4.5 MG, DAILY (1/D)
     Dates: start: 19740101
  4. FLUDROCORTISONE ACETATE [Concomitant]
     Dosage: 0.1 MG, DAILY (1/D)
  5. HYDROCORTISONE [Concomitant]
  6. PREVACID [Concomitant]
     Dosage: 30 MG, DAILY (1/D)
  7. MULTIVITAMINS, COMBINATIONS [Concomitant]
  8. FOLIC ACID [Concomitant]
  9. VITAMIN D [Concomitant]
     Dosage: 1200 MG, DAILY (1/D)
  10. DOCUSATE SODIUM [Concomitant]
     Dosage: 100 MG, UNK
  11. FLOMAX [Concomitant]
     Dosage: 0.4 MG, EACH EVENING
  12. TYLENOL                                 /SCH/ [Concomitant]
     Dosage: UNK, AS NEEDED

REACTIONS (4)
  - DYSPNOEA [None]
  - HAEMOPTYSIS [None]
  - MYOCARDIAL INFARCTION [None]
  - PNEUMONIA [None]
